FAERS Safety Report 5444686-1 (Version None)
Quarter: 2007Q3

REPORT INFORMATION
  Report Type: 
  Country: None (occurrence: None)
  Receive Date: 20070906
  Receipt Date: 20070131
  Transmission Date: 20080115
  Serious: No
  Sender: FDA-Public Use
  Company Number: A0637808A

PATIENT
  Age: 70 Year
  Sex: Female

DRUGS (3)
  1. REQUIP [Suspect]
     Indication: PARKINSON'S DISEASE
     Dosage: 2MG THREE TIMES PER DAY
     Route: 048
  2. SINEMET [Concomitant]
  3. NEXIUM [Concomitant]

REACTIONS (3)
  - LETHARGY [None]
  - PALPITATIONS [None]
  - SKIN DISCOLOURATION [None]
